FAERS Safety Report 10668030 (Version 1)
Quarter: 2014Q4

REPORT INFORMATION
  Report Type: Spontaneous
  Country: US (occurrence: US)
  Receive Date: 20141222
  Receipt Date: 20141222
  Transmission Date: 20150529
  Serious: No
  Sender: FDA-Public Use
  Company Number: US-GLAXOSMITHKLINE-A1076017A

PATIENT

DRUGS (3)
  1. SORIATANE [Suspect]
     Active Substance: ACITRETIN
     Indication: CUTANEOUS LUPUS ERYTHEMATOSUS
     Route: 048
  2. DIOVAN [Concomitant]
     Active Substance: VALSARTAN
  3. MELOXICAM. [Concomitant]
     Active Substance: MELOXICAM

REACTIONS (1)
  - Therapeutic response unexpected [Unknown]
